FAERS Safety Report 5807289-2 (Version None)
Quarter: 2008Q3

REPORT INFORMATION
  Report Type: 
  Country: None (occurrence: None)
  Receive Date: 20080711
  Receipt Date: 20080703
  Transmission Date: 20090109
  Serious: Yes (Life-Threatening, Hospitalization)
  Sender: FDA-Public Use
  Company Number: GB-ABBOTT-08P-167-0461234-00

PATIENT
  Age: 16 Year
  Sex: Male

DRUGS (3)
  1. ERYTHROMYCIN BASE [Suspect]
     Indication: ACNE
     Route: 048
     Dates: start: 20070613, end: 20070724
  2. ISOTRETINOIN [Suspect]
     Indication: ACNE
     Route: 048
     Dates: start: 20070613, end: 20070724
  3. ACETAMINOPHEN [Concomitant]
     Indication: HEADACHE
     Route: 048
     Dates: start: 20070720

REACTIONS (4)
  - ENCEPHALOPATHY [None]
  - HALLUCINATION [None]
  - HEADACHE [None]
  - NAUSEA [None]
